FAERS Safety Report 12009930 (Version 3)
Quarter: 2016Q4

REPORT INFORMATION
  Report Type: Spontaneous
  Country: GB (occurrence: GB)
  Receive Date: 20160205
  Receipt Date: 20161216
  Transmission Date: 20170206
  Serious: Yes (Other)
  Sender: FDA-Public Use
  Company Number: GB-AMGEN-GBRSP2016011677

PATIENT
  Sex: Male
  Weight: 1.43 kg

DRUGS (3)
  1. MULTIVITAMIN [Concomitant]
     Active Substance: VITAMINS
     Dosage: 0.6 ML, QD
     Route: 048
     Dates: start: 20151219
  2. GALFER [Concomitant]
     Active Substance: IRON
     Dosage: 0.5 ML, BID
     Route: 048
     Dates: start: 20151219
  3. ARANESP [Suspect]
     Active Substance: DARBEPOETIN ALFA
     Indication: EXPOSURE DURING PREGNANCY
     Dosage: UNK
     Route: 064

REACTIONS (2)
  - Premature baby [Unknown]
  - Developmental delay [Not Recovered/Not Resolved]
